FAERS Safety Report 11182330 (Version 1)
Quarter: 2015Q2

REPORT INFORMATION
  Report Type: Spontaneous
  Country: US (occurrence: US)
  Receive Date: 20150611
  Receipt Date: 20150611
  Transmission Date: 20150821
  Serious: No
  Sender: FDA-Public Use
  Company Number: US-B.I. PHARMACEUTICALS,INC./RIDGEFIELD-2015-BI-29060BP

PATIENT
  Sex: Female

DRUGS (10)
  1. SPIRIVA [Suspect]
     Active Substance: TIOTROPIUM BROMIDE MONOHYDRATE
     Indication: ASTHMA
     Dosage: 18 MCG
     Route: 055
  2. SINGULAIR [Concomitant]
     Active Substance: MONTELUKAST SODIUM
     Indication: ASTHMA
     Dosage: 10 MG
     Route: 048
  3. OMNICEF [Concomitant]
     Active Substance: CEFDINIR
     Indication: PULMONARY MASS
     Route: 065
  4. PROAIR HFA [Concomitant]
     Active Substance: ALBUTEROL SULFATE
     Indication: ASTHMA
     Dosage: FORMULATION: AEROSOL SOLUTION; STRENGTH: 108 (90 BASE)MCG/ACT, 2 PUFFS
     Route: 055
  5. DEXILANT [Concomitant]
     Active Substance: DEXLANSOPRAZOLE
     Indication: GASTROOESOPHAGEAL REFLUX DISEASE
     Dosage: 60 MG
     Route: 048
  6. PREDNISONE. [Concomitant]
     Active Substance: PREDNISONE
     Indication: ASTHMA
     Route: 048
  7. LASIX [Concomitant]
     Active Substance: FUROSEMIDE
     Indication: CARDIAC FAILURE CONGESTIVE
     Dosage: 10 MG
     Route: 048
  8. COREG [Concomitant]
     Active Substance: CARVEDILOL
     Indication: ARTERIOSCLEROSIS CORONARY ARTERY
     Route: 065
  9. SYMBICORT [Concomitant]
     Active Substance: BUDESONIDE\FORMOTEROL FUMARATE DIHYDRATE
     Indication: ASTHMA
     Dosage: STRENGTH: 160-4.5MCG/ACT, 2 PUFFS
     Route: 055
  10. ASA [Concomitant]
     Active Substance: ASPIRIN
     Indication: ARTERIOSCLEROSIS CORONARY ARTERY
     Route: 065

REACTIONS (1)
  - Dyspnoea [Unknown]
